FAERS Safety Report 5718049-5 (Version None)
Quarter: 2008Q2

REPORT INFORMATION
  Report Type: 
  Country: None (occurrence: None)
  Receive Date: 20080425
  Receipt Date: 20080418
  Transmission Date: 20081010
  Serious: Yes (Hospitalization)
  Sender: FDA-Public Use
  Company Number: JP-ASTRAZENECA-2007AP06653

PATIENT
  Age: 24343 Day
  Sex: Male
  Weight: 48 kg

DRUGS (35)
  1. DIPRIVAN [Suspect]
     Indication: MAINTENANCE OF ANAESTHESIA
     Dosage: 15 ML/HR - 40 ML/HR
     Route: 042
     Dates: start: 20070410, end: 20070411
  2. GASTER D [Concomitant]
     Indication: GASTRITIS
     Route: 048
     Dates: start: 20070227, end: 20070409
  3. DORAL [Concomitant]
     Indication: INSOMNIA
     Route: 048
     Dates: start: 20070402, end: 20070404
  4. MYSLEE [Concomitant]
     Indication: INSOMNIA
     Route: 048
     Dates: start: 20070402, end: 20070409
  5. TOLEDOMIN [Concomitant]
     Indication: DEPRESSION
     Route: 048
     Dates: start: 20070402, end: 20070409
  6. MAGNESIUM OXIDE [Concomitant]
     Indication: CONSTIPATION
     Route: 048
     Dates: start: 20070402, end: 20070409
  7. EXCELASE [Concomitant]
     Indication: GASTROINTESTINAL DISORDER
     Route: 048
     Dates: start: 20070402, end: 20070409
  8. DIAZEPAM [Concomitant]
     Indication: ANAESTHETIC PREMEDICATION
     Route: 048
     Dates: start: 20070410, end: 20070410
  9. DORMICUM [Concomitant]
     Indication: INDUCTION OF ANAESTHESIA
     Dosage: 4 MG (AT 10:00), 6 MG (AT 10:15), AND 10 MG (AT 10:20)
     Route: 042
     Dates: start: 20070410, end: 20070410
  10. MUSCULAX [Concomitant]
     Indication: INDUCTION OF ANAESTHESIA
     Route: 042
     Dates: start: 20070410, end: 20070410
  11. MUSCULAX [Concomitant]
     Indication: MAINTENANCE OF ANAESTHESIA
     Route: 042
     Dates: start: 20070410, end: 20070410
  12. MUSCULAX [Concomitant]
     Route: 042
     Dates: start: 20070410, end: 20070410
  13. MUSCULAX [Concomitant]
     Route: 042
     Dates: start: 20070410, end: 20070410
  14. FENTANYL CITRATE [Concomitant]
     Indication: INDUCTION OF ANAESTHESIA
     Route: 042
     Dates: start: 20070410, end: 20070410
  15. NAROPIN [Concomitant]
     Indication: INDUCTION OF ANAESTHESIA
     Route: 008
     Dates: start: 20070410, end: 20070410
  16. EPHEDRIN [Concomitant]
     Indication: BLOOD PRESSURE MANAGEMENT
     Route: 058
     Dates: start: 20070410, end: 20070410
  17. NAROPIN [Concomitant]
     Indication: ANALGESIC THERAPY
     Dosage: 2 ML/H
     Route: 008
     Dates: start: 20070410, end: 20070410
  18. FENTANYL CITRATE [Concomitant]
     Indication: ANALGESIC THERAPY
     Dosage: 2 ML/H
     Route: 065
     Dates: start: 20070410, end: 20070410
  19. DROLEPTAN [Concomitant]
     Indication: ANALGESIC THERAPY
     Dosage: 2 ML/H
     Route: 065
     Dates: start: 20070410, end: 20070410
  20. SOLU-CORTEF [Concomitant]
     Indication: COLONY STIMULATING FACTOR PROPHYLAXIS
     Route: 042
     Dates: start: 20070410, end: 20070410
  21. NOR-ADRENALIN [Concomitant]
     Indication: BLOOD PRESSURE MANAGEMENT
     Dosage: 0.05 MICRO-G/KG/MIN, 0.02 MICRO-G/KG/MIN
     Route: 042
     Dates: start: 20070410, end: 20070410
  22. INOVAN [Concomitant]
     Indication: BLOOD PRESSURE MANAGEMENT
     Route: 042
     Dates: start: 20070410, end: 20070410
  23. INOVAN [Concomitant]
     Route: 042
     Dates: start: 20070411, end: 20070411
  24. PANSPORIN:KIT [Concomitant]
     Dosage: 1 G X 4
     Route: 042
     Dates: start: 20070410, end: 20070410
  25. MANNITOL [Concomitant]
     Dosage: 200 ML TWICE
     Route: 042
     Dates: start: 20070410, end: 20070410
  26. ALBUMIN (HUMAN) [Concomitant]
     Route: 042
     Dates: start: 20070410, end: 20070410
  27. HARTMANN [Concomitant]
     Route: 042
     Dates: start: 20070410, end: 20070410
  28. SEISHOKU [Concomitant]
     Route: 042
     Dates: start: 20070410, end: 20070410
  29. HESPANDER [Concomitant]
     Route: 042
     Dates: start: 20070410, end: 20070410
  30. VAGOSTIGMIN [Concomitant]
     Route: 042
     Dates: start: 20070411, end: 20070411
  31. ATROPINE SULFATE [Concomitant]
     Route: 065
     Dates: start: 20070411, end: 20070411
  32. ANEXATE [Concomitant]
     Route: 042
     Dates: start: 20070411, end: 20070411
  33. PANSPORIN [Concomitant]
     Route: 041
     Dates: start: 20070411, end: 20070416
  34. NEO-SYNESIN [Concomitant]
     Indication: BLOOD PRESSURE MANAGEMENT
     Dosage: 0.1 MG-0.7 MG
     Route: 042
     Dates: start: 20070410, end: 20070410
  35. NEO-SYNESIN [Concomitant]
     Dosage: 0.1MG TO 1.0 MG
     Route: 042
     Dates: start: 20070411, end: 20070411

REACTIONS (1)
  - DELAYED RECOVERY FROM ANAESTHESIA [None]
